FAERS Safety Report 12646507 (Version 1)
Quarter: 2016Q3

REPORT INFORMATION
  Report Type: Spontaneous
  Country: US (occurrence: US)
  Receive Date: 20160812
  Receipt Date: 20160812
  Transmission Date: 20161109
  Serious: No
  Sender: FDA-Public Use
  Company Number: US-ASTRAZENECA-2016SE84842

PATIENT
  Sex: Female

DRUGS (2)
  1. SEROQUEL [Suspect]
     Active Substance: QUETIAPINE FUMARATE
     Indication: SUICIDAL BEHAVIOUR
     Route: 048
     Dates: start: 2004, end: 2005
  2. SEROQUEL [Suspect]
     Active Substance: QUETIAPINE FUMARATE
     Indication: BIPOLAR DISORDER
     Route: 048
     Dates: start: 2004, end: 2005

REACTIONS (8)
  - Anxiety [Unknown]
  - Eating disorder [Unknown]
  - Multiple fractures [Unknown]
  - Dementia [Unknown]
  - Drug prescribing error [Unknown]
  - Visual impairment [Unknown]
  - Body height decreased [Unknown]
  - Tooth loss [Unknown]
